FAERS Safety Report 10160590 (Version 1)
Quarter: 2014Q2

REPORT INFORMATION
  Report Type: Spontaneous
  Country: US (occurrence: US)
  Receive Date: 20140508
  Receipt Date: 20140508
  Transmission Date: 20141212
  Serious: Yes (Other)
  Sender: FDA-Public Use
  Company Number: US-ACTAVIS-2014-09426

PATIENT
  Age: 64 Year
  Sex: Male
  Weight: 96 kg

DRUGS (7)
  1. LACOSAMIDE [Concomitant]
     Indication: STATUS EPILEPTICUS
     Dosage: 50 MG, BID
     Route: 048
  2. ISONIAZID [Concomitant]
     Indication: MENINGOENCEPHALITIS BACTERIAL
     Dosage: 300 MG, DAILY
     Route: 048
  3. ETHAMBUTOL [Concomitant]
     Indication: MENINGOENCEPHALITIS BACTERIAL
     Dosage: 1600 MG, UNK; EVERY 48 HOURS
     Route: 048
  4. PYRAZINAMIDE [Concomitant]
     Indication: MENINGOENCEPHALITIS BACTERIAL
     Dosage: 1500 MG, DAILY
     Route: 048
  5. PHENYTOIN (AMALLC) [Suspect]
     Indication: STATUS EPILEPTICUS
     Dosage: 330 MG, DAILY
     Route: 048
  6. RIFAMPICIN (UNKNOWN) [Interacting]
     Indication: MENINGOENCEPHALITIS BACTERIAL
     Dosage: 600 MG, DAILY
     Route: 048
  7. LEVETIRACETAM [Concomitant]
     Indication: STATUS EPILEPTICUS
     Dosage: 500 MG, BID
     Route: 048

REACTIONS (2)
  - Drug level decreased [Recovered/Resolved]
  - Drug interaction [Recovered/Resolved]
